FAERS Safety Report 8364910-5 (Version None)
Quarter: 2012Q2

REPORT INFORMATION
  Report Type: 
  Country: None (occurrence: None)
  Receive Date: 20120516
  Receipt Date: 20120510
  Transmission Date: 20120825
  Serious: Yes (Other)
  Sender: FDA-Public Use
  Company Number: GR-ROCHE-1066509

PATIENT
  Age: 29 Year
  Sex: Female

DRUGS (3)
  1. ALCAINE [Concomitant]
  2. LUCENTIS [Suspect]
     Indication: CHOROIDAL NEOVASCULARISATION
     Route: 050
  3. POVIDONE IODINE [Concomitant]

REACTIONS (3)
  - NORMAL NEWBORN [None]
  - MATERNAL EXPOSURE DURING PREGNANCY [None]
  - MACULAR SCAR [None]
